FAERS Safety Report 20855675 (Version 1)
Quarter: 2022Q2

REPORT INFORMATION
  Report Type: Spontaneous
  Country: FR (occurrence: FR)
  Receive Date: 20220520
  Receipt Date: 20220520
  Transmission Date: 20220721
  Serious: Yes (Death, Other)
  Sender: FDA-Public Use
  Company Number: FR-CIPHER-2022-FR-000004

PATIENT
  Age: 32 Year
  Sex: Female

DRUGS (8)
  1. TRAMADOL HYDROCHLORIDE [Suspect]
     Active Substance: TRAMADOL HYDROCHLORIDE
  2. AMITRIPTYLINE [Concomitant]
     Active Substance: AMITRIPTYLINE
  3. LORMETAZEPAM [Concomitant]
     Active Substance: LORMETAZEPAM
  4. GABAPENTIN [Suspect]
     Active Substance: GABAPENTIN
  5. ACTIVATED CHARCOAL [Concomitant]
     Active Substance: ACTIVATED CHARCOAL
  6. AMOXICILLIN\CLAVULANATE POTASSIUM [Concomitant]
     Active Substance: AMOXICILLIN\CLAVULANATE POTASSIUM
  7. CLONAZEPAM [Concomitant]
     Active Substance: CLONAZEPAM
  8. ACETYLCYSTEINE [Concomitant]
     Active Substance: ACETYLCYSTEINE

REACTIONS (11)
  - Brain injury [Unknown]
  - Areflexia [Unknown]
  - Brain death [Fatal]
  - Overdose [Fatal]
  - Dyskinesia [Not Recovered/Not Resolved]
  - Coma [Fatal]
  - Miosis [Not Recovered/Not Resolved]
  - Pneumonia aspiration [Not Recovered/Not Resolved]
  - Eyelid myoclonus [Not Recovered/Not Resolved]
  - Mydriasis [Not Recovered/Not Resolved]
  - Toxic encephalopathy [Unknown]
